FAERS Safety Report 10423115 (Version 2)
Quarter: 2014Q4

REPORT INFORMATION
  Report Type: Spontaneous
  Country: US (occurrence: None)
  Receive Date: 20140722
  Receipt Date: 20141121
  Transmission Date: 20150528
  Serious: Yes (Other)
  Sender: FDA-Public Use
  Company Number: 163-10004-14060208

PATIENT
  Age: 51 Year
  Sex: Male
  Weight: 108.86 kg

DRUGS (7)
  1. FLEXERIL [Concomitant]
     Active Substance: CYCLOBENZAPRINE HYDROCHLORIDE
  2. PERCOCET (OXYCOCET) [Concomitant]
  3. OTEZLA [Suspect]
     Active Substance: APREMILAST
     Indication: PSORIATIC ARTHROPATHY
     Dosage: 2 IN 1 D
     Route: 048
     Dates: start: 20140521, end: 20140620
  4. OXYIR (OXYCODONE HYDROCHLORIDE) [Concomitant]
  5. KETOPROFEN. [Concomitant]
     Active Substance: KETOPROFEN
  6. KLONOPIN [Concomitant]
     Active Substance: CLONAZEPAM
  7. ENBREL [Concomitant]
     Active Substance: ETANERCEPT

REACTIONS (2)
  - Diarrhoea [None]
  - Migraine [None]

NARRATIVE: CASE EVENT DATE: 20140521
